FAERS Safety Report 9054662 (Version 3)
Quarter: 2014Q1

REPORT INFORMATION
  Report Type: Report from Study
  Country: CA (occurrence: CA)
  Receive Date: 20130208
  Receipt Date: 20140128
  Transmission Date: 20141002
  Serious: Yes (Hospitalization)
  Sender: FDA-Public Use
  Company Number: CA-JNJFOC-20130117364

PATIENT
  Sex: Female

DRUGS (1)
  1. REMICADE [Suspect]
     Indication: EXPOSURE VIA BODY FLUID
     Route: 050

REACTIONS (2)
  - Premature rupture of membranes [Unknown]
  - Exposure during pregnancy [Recovered/Resolved]
